FAERS Safety Report 23668222 (Version 6)
Quarter: 2024Q4

REPORT INFORMATION
  Report Type: Spontaneous
  Country: US (occurrence: US)
  Receive Date: 20240325
  Receipt Date: 20241003
  Transmission Date: 20250115
  Serious: No
  Sender: PFIZER
  Company Number: US-PFIZER INC-202400058878

PATIENT
  Age: 13 Year
  Sex: Female
  Weight: 37.3 kg

DRUGS (3)
  1. GENOTROPIN [Suspect]
     Active Substance: SOMATROPIN
     Indication: Growth hormone deficiency
     Dosage: 1.4 MG, DAILY
     Dates: start: 202311
  2. GENOTROPIN [Suspect]
     Active Substance: SOMATROPIN
     Indication: Hypopituitarism
     Dosage: 1.4 MG, DAILY, NIGHTLY (AT BEDTIME), 7 DAYS/WEEK
     Route: 058
     Dates: start: 20240920
  3. GENOTROPIN [Suspect]
     Active Substance: SOMATROPIN
     Indication: Hypopituitarism

REACTIONS (2)
  - Device physical property issue [Unknown]
  - Drug dose omission by device [Unknown]
